FAERS Safety Report 10249451 (Version 1)
Quarter: 2014Q2

REPORT INFORMATION
  Report Type: Spontaneous
  Country: US (occurrence: US)
  Receive Date: 20140620
  Receipt Date: 20140620
  Transmission Date: 20141212
  Serious: Yes (Other)
  Sender: FDA-Public Use
  Company Number: US-JNJFOC-20140610863

PATIENT
  Sex: 0

DRUGS (2)
  1. INVOKANA [Suspect]
     Indication: PRODUCT USED FOR UNKNOWN INDICATION
  2. ACE INHIBITOR [Concomitant]

REACTIONS (1)
  - Hyperkalaemia [Recovered/Resolved]
